FAERS Safety Report 7627580-7 (Version None)
Quarter: 2011Q3

REPORT INFORMATION
  Report Type: 
  Country: None (occurrence: None)
  Receive Date: 20110721
  Receipt Date: 20110713
  Transmission Date: 20111222
  Serious: Yes (Other)
  Sender: FDA-Public Use
  Company Number: US-BAXTER-2011BH023594

PATIENT
  Sex: Male

DRUGS (2)
  1. TISSEEL VH [Suspect]
     Indication: OFF LABEL USE
     Route: 065
  2. TISSEEL VH [Suspect]
     Indication: URETHRAL REPAIR
     Route: 065

REACTIONS (3)
  - FISTULA [None]
  - URETHRAL FISTULA [None]
  - OFF LABEL USE [None]
